FAERS Safety Report 9494088 (Version 1)
Quarter: 2013Q3

REPORT INFORMATION
  Report Type: Spontaneous
  Country: US (occurrence: None)
  Receive Date: 20130829
  Receipt Date: 20130829
  Transmission Date: 20140515
  Serious: Yes (Other)
  Sender: FDA-Public Use
  Company Number: None

PATIENT
  Sex: 0

DRUGS (1)
  1. PROMETHAZINE [Suspect]
     Route: 042
     Dates: start: 20130109, end: 20130110

REACTIONS (3)
  - Infusion site pain [None]
  - Infusion site erythema [None]
  - Infusion site mass [None]
